FAERS Safety Report 5787030-2 (Version None)
Quarter: 2008Q2

REPORT INFORMATION
  Report Type: 
  Country: None (occurrence: None)
  Receive Date: 20080618
  Receipt Date: 20070608
  Transmission Date: 20081010
  Serious: Yes (Other)
  Sender: FDA-Public Use
  Company Number: 200620076US

PATIENT
  Age: 70 Year
  Sex: Female

DRUGS (12)
  1. LANTUS [Suspect]
     Indication: TYPE 2 DIABETES MELLITUS
     Dosage: 40 U
     Dates: start: 20061201
  2. LANTUS [Suspect]
     Indication: TYPE 2 DIABETES MELLITUS
     Dosage: 46 U HS
     Dates: start: 20061201
  3. APIDRA [Suspect]
     Indication: TYPE 2 DIABETES MELLITUS
     Dosage: 6 IU TID
     Dates: start: 20061201
  4. APIDRA [Suspect]
     Indication: TYPE 2 DIABETES MELLITUS
     Dosage: 8 IU TID
     Dates: start: 20061201
  5. OPTICLIK [Suspect]
     Indication: TYPE 2 DIABETES MELLITUS
     Dates: start: 20061201
  6. OPTICLIK [Suspect]
  7. METFORMIN HCL [Concomitant]
  8. LIPITOR [Concomitant]
  9. TOPROL-XL [Concomitant]
  10. LISINOPRIL ACETYLSALICYLIC ACID (ASA) [Concomitant]
  11. OMEPRAZOLE (OMCAR) [Concomitant]
  12. NICOTINIC ACID (NIASPAN) [Concomitant]

REACTIONS (4)
  - DRUG INEFFECTIVE [None]
  - HYPERGLYCAEMIA [None]
  - INJECTION SITE HAEMORRHAGE [None]
  - MUSCLE SPASMS [None]
